FAERS Safety Report 8024461-4 (Version None)
Quarter: 2012Q1

REPORT INFORMATION
  Report Type: 
  Country: None (occurrence: None)
  Receive Date: 20120103
  Receipt Date: 20111221
  Transmission Date: 20120608
  Serious: Yes (Hospitalization, Other)
  Sender: FDA-Public Use
  Company Number: ACO_20444_2010

PATIENT
  Age: 46 Year
  Sex: Female
  Weight: 113.4 kg

DRUGS (12)
  1. PRAVACHOL [Concomitant]
  2. PROVIGIL [Concomitant]
  3. SPIRONOLACTONE [Concomitant]
  4. DETROL [Concomitant]
  5. KEPPRA [Concomitant]
  6. REBIF [Concomitant]
  7. EFFEXOR [Concomitant]
  8. LASIX [Concomitant]
  9. THYROID PILL [Concomitant]
  10. AMPYRA [Suspect]
     Indication: GAIT DISTURBANCE
     Dosage: 10 MG, BID, ORAL
     Route: 048
     Dates: start: 20100715, end: 20100805
  11. AMPYRA [Suspect]
     Indication: GAIT DISTURBANCE
     Dosage: 10 MG, BID, ORAL
     Route: 048
     Dates: start: 20100806, end: 20101101
  12. AMPYRA [Suspect]
     Indication: GAIT DISTURBANCE
     Dosage: 10 MG, BID, ORAL
     Route: 048
     Dates: start: 20101101

REACTIONS (6)
  - MUSCLE SPASMS [None]
  - THROAT IRRITATION [None]
  - PAIN [None]
  - INAPPROPRIATE SCHEDULE OF DRUG ADMINISTRATION [None]
  - CYSTITIS KLEBSIELLA [None]
  - PYREXIA [None]
